FAERS Safety Report 20928478 (Version 2)
Quarter: 2022Q3

REPORT INFORMATION
  Report Type: Spontaneous
  Country: US (occurrence: US)
  Receive Date: 20220607
  Receipt Date: 20220811
  Transmission Date: 20221026
  Serious: Yes (Other)
  Sender: FDA-Public Use
  Company Number: US-CELGENE-USA-20220105002

PATIENT
  Age: 88 Year
  Sex: Male

DRUGS (2)
  1. REVLIMID [Suspect]
     Active Substance: LENALIDOMIDE
     Indication: Plasma cell myeloma
     Dosage: 10 MILLIGRAM
     Route: 048
     Dates: start: 202002
  2. REVLIMID [Suspect]
     Active Substance: LENALIDOMIDE
     Dosage: FREQUENCY: OTHER
     Route: 048

REACTIONS (10)
  - Fatigue [Unknown]
  - Fatigue [Unknown]
  - Diarrhoea [Unknown]
  - Back pain [Unknown]
  - Haemoglobin decreased [Unknown]
  - Sinusitis [Recovering/Resolving]
  - Headache [Unknown]
  - Taste disorder [Unknown]
  - Neuropathy peripheral [Unknown]
  - Back pain [Unknown]

NARRATIVE: CASE EVENT DATE: 20200203
